FAERS Safety Report 6265259-7 (Version None)
Quarter: 2009Q3

REPORT INFORMATION
  Report Type: 
  Country: None (occurrence: None)
  Receive Date: 20090713
  Receipt Date: 20090702
  Transmission Date: 20100115
  Serious: Yes (Other)
  Sender: FDA-Public Use
  Company Number: DK-ASTRAZENECA-2009SE03418

PATIENT
  Age: 23409 Day
  Sex: Male

DRUGS (9)
  1. CRESTOR [Suspect]
     Indication: BLOOD CHOLESTEROL INCREASED
     Route: 048
     Dates: start: 20090618, end: 20090623
  2. SIMVASTATIN [Concomitant]
     Indication: BLOOD CHOLESTEROL INCREASED
  3. PANTALOC [Concomitant]
     Route: 065
  4. ISODUR [Concomitant]
     Indication: CARDIOVASCULAR EVENT PROPHYLAXIS
  5. AMBODIPIN [Concomitant]
     Route: 065
  6. COZAAR [Concomitant]
     Indication: HYPERTENSION
     Route: 065
  7. MAGNYL [Concomitant]
     Indication: THROMBOSIS PROPHYLAXIS
     Route: 065
  8. FISH OIL [Concomitant]
     Route: 065
  9. GLUCOSEAMIN [Concomitant]
     Route: 065

REACTIONS (4)
  - DYSPNOEA [None]
  - HEART RATE INCREASED [None]
  - PYREXIA [None]
  - RASH [None]
